FAERS Safety Report 8817251 (Version 1)
Quarter: 2012Q4

REPORT INFORMATION
  Report Type: 
  Country: GB (occurrence: GB)
  Receive Date: 20121004
  Receipt Date: 20121004
  Transmission Date: 20130627
  Serious: Yes (Other)
  Sender: FDA-Public Use
  Company Number: GB-BAUSCH-BL-2012-001083

PATIENT
  Age: 54 Year
  Sex: Female
  Weight: 76.2 kg

DRUGS (6)
  1. PREDNISOLONE [Suspect]
     Indication: EAR CONGESTION
     Dosage: 1/1DAYS
     Route: 048
     Dates: start: 20120822, end: 20120824
  2. CICLOSPORIN [Suspect]
     Indication: PRODUCT USED FOR UNKNOWN INDICATION
     Dosage: 1/ 1DAYS
     Route: 048
  3. NO DRUG NAME [Concomitant]
     Indication: PRODUCT USED FOR UNKNOWN INDICATION
     Route: 048
  4. NO DRUG NAME [Concomitant]
     Indication: PRODUCT USED FOR UNKNOWN INDICATION
     Dosage: 1/ 1DAYS
     Route: 048
  5. NO DRUG NAME [Concomitant]
     Indication: PRODUCT USED FOR UNKNOWN INDICATION
     Dosage: 1/ 1DAYS
     Route: 048
  6. NO DRUG NAME [Concomitant]
     Indication: PRODUCT USED FOR UNKNOWN INDICATION
     Route: 048

REACTIONS (2)
  - Drug interaction [Recovered/Resolved]
  - Myalgia [Recovered/Resolved]
